FAERS Safety Report 4321959-7 (Version None)
Quarter: 2004Q1

REPORT INFORMATION
  Report Type: 
  Country: None (occurrence: None)
  Receive Date: 20040323
  Receipt Date: 20040319
  Transmission Date: 20041129
  Serious: Yes (Hospitalization)
  Sender: FDA-Public Use
  Company Number: FR-ROCHE-361992

PATIENT
  Sex: Male
  Weight: 1.9 kg

DRUGS (3)
  1. LOXEN [Suspect]
     Indication: DRUG USE FOR UNKNOWN INDICATION
     Route: 064
     Dates: start: 20031212, end: 20031214
  2. AMOXICILLIN [Concomitant]
     Route: 064
     Dates: start: 20031212, end: 20031213
  3. CELESTENE [Concomitant]
     Route: 064
     Dates: start: 20031212, end: 20031213

REACTIONS (3)
  - MATERNAL DRUGS AFFECTING FOETUS [None]
  - PREMATURE BABY [None]
  - SMALL FOR DATES BABY [None]
